FAERS Safety Report 18992692 (Version 3)
Quarter: 2021Q2

REPORT INFORMATION
  Report Type: Spontaneous
  Country: IN (occurrence: IN)
  Receive Date: 20210310
  Receipt Date: 20210510
  Transmission Date: 20210717
  Serious: Yes (Hospitalization)
  Sender: FDA-Public Use
  Company Number: IN-PFIZER INC-2019271908

PATIENT
  Age: 61 Year
  Sex: Female

DRUGS (6)
  1. LEVIPIL [Suspect]
     Active Substance: LEVETIRACETAM
     Dosage: 500 MG, 1X/DAY
  2. PALBACE [Suspect]
     Active Substance: PALBOCICLIB
     Indication: BREAST CANCER METASTATIC
     Dosage: 100 MG, 1X/DAY
     Route: 048
     Dates: start: 201905
  3. PALBACE [Suspect]
     Active Substance: PALBOCICLIB
     Dosage: 100 MG, CYCLIC (OD X 21 DAYS, EVERY 4 WEEKS)
     Route: 048
     Dates: start: 20190620
  4. PALBACE [Suspect]
     Active Substance: PALBOCICLIB
     Dosage: 100 MG, 1X/DAY
     Route: 048
     Dates: start: 20190622
  5. PAN D [DOMPERIDONE;PANTOPRAZOLE SODIUM SESQUIHYDRATE] [Suspect]
     Active Substance: DOMPERIDONE\PANTOPRAZOLE SODIUM
     Dosage: UNK, 1X/DAY
  6. LETROZOLE. [Concomitant]
     Active Substance: LETROZOLE
     Dosage: 2.5 MG, 1X/DAY
     Dates: start: 201905

REACTIONS (2)
  - Fatigue [Unknown]
  - Hyponatraemia [Unknown]
